FAERS Safety Report 12226832 (Version 1)
Quarter: 2016Q1

REPORT INFORMATION
  Report Type: Report from Study
  Country: CA (occurrence: CA)
  Receive Date: 20160331
  Receipt Date: 20160331
  Transmission Date: 20160526
  Serious: Yes (Other)
  Sender: FDA-Public Use
  Company Number: CA-ABBVIE-16K-028-1577603-00

PATIENT
  Age: 49 Year
  Sex: Female
  Weight: 61.4 kg

DRUGS (1)
  1. HUMIRA [Suspect]
     Active Substance: ADALIMUMAB
     Indication: CROHN^S DISEASE
     Route: 058
     Dates: start: 20150817, end: 201603

REACTIONS (5)
  - Dizziness [Unknown]
  - Hypoaesthesia [Unknown]
  - Demyelination [Unknown]
  - Paraesthesia [Unknown]
  - Neurological symptom [Unknown]

NARRATIVE: CASE EVENT DATE: 201512
